FAERS Safety Report 18133587 (Version 2)
Quarter: 2020Q3

REPORT INFORMATION
  Report Type: Report from Study
  Country: NL (occurrence: NL)
  Receive Date: 20200811
  Receipt Date: 20200911
  Transmission Date: 20201103
  Serious: Yes (Death, Other)
  Sender: FDA-Public Use
  Company Number: NL-AMGEN-NLDSL2020128588

PATIENT
  Age: 64 Year
  Sex: Female

DRUGS (24)
  1. CALCIUM CARBONATE W/VITAMIN D [CALCIUM CARBONATE;COLECALCIFEROL] [Concomitant]
     Active Substance: CALCIUM CARBONATE\CHOLECALCIFEROL
     Dosage: 2.5G/880IE (1000MG CA), QD
  2. CARBOMER [Concomitant]
     Active Substance: CARBOMER
     Dosage: 2MG/G (CARBOMEER 980) MINIM 0,6G, 4D1DR
  3. CLOPIDOGREL [Concomitant]
     Active Substance: CLOPIDOGREL BISULFATE
     Dosage: 75 MILLIGRAM, QD
  4. POVIDON [Concomitant]
     Dosage: 20MG/ML FL 15ML, 4D1?2DR
  5. PROMETHAZINE [Concomitant]
     Active Substance: PROMETHAZINE HYDROCHLORIDE
     Dosage: 1 MILLIGRAM PER MILLILITRE ?2D8ML
  6. TEMAZEPAM. [Concomitant]
     Active Substance: TEMAZEPAM
     Dosage: 10 MILLIGRAM, QD
  7. FENTANYL. [Concomitant]
     Active Substance: FENTANYL
     Dosage: PLASTER 50UG/HR (GENERIC+DUROGESIC), 1X3D1PL
  8. PREGABALINE [Concomitant]
     Active Substance: PREGABALIN
     Dosage: 75 MILLIGRAM 2D1C
  9. TEMAZEPAM. [Concomitant]
     Active Substance: TEMAZEPAM
     Dosage: 20 MILLIGRAM, QD (WHEN NECESSARY)
  10. FLUTICASONE PROPIONATE. [Concomitant]
     Active Substance: FLUTICASONE PROPIONATE
     Dosage: 50UG/DO FL 150DO, 1D1SPR
     Route: 045
  11. MACROGOL [Concomitant]
     Active Substance: POLYETHYLENE GLYCOLS
     Dosage: 2D1S
  12. PANTOPRAZOL [PANTOPRAZOLE] [Concomitant]
     Active Substance: PANTOPRAZOLE
     Dosage: 20 MILLIGRAM, QD
  13. XGEVA [Suspect]
     Active Substance: DENOSUMAB
     Indication: PROPHYLAXIS
     Dosage: 120 MILLIGRAM, 70MG/ML FLACON 1,7ML, Q4WK
     Route: 058
     Dates: end: 20200710
  14. DEXAMETHASON [DEXAMETHASONE] [Concomitant]
     Active Substance: DEXAMETHASONE
     Dosage: 4MG/ML (BASE) AMP 1ML, 1D1ML
  15. MORPHINE [Concomitant]
     Active Substance: MORPHINE
     Dosage: 10 MILLIGRAM PER MILLILITRE CAS 100ML
  16. POVIDON [Concomitant]
     Dosage: 20MG/ML TUBE 0,4ML, 4D1?2DR
  17. FENTANYL. [Concomitant]
     Active Substance: FENTANYL
     Dosage: 5UG/HR (GENERIC+DUROGESIC), 1X3D1PLUNK
  18. MIDAZOLAM. [Concomitant]
     Active Substance: MIDAZOLAM
     Dosage: 2.5MG/DO FL 108DOUNK
     Route: 045
  19. SODIUM CHLORIDE. [Concomitant]
     Active Substance: SODIUM CHLORIDE
     Dosage: 9 MILLIGRAM PER MILLILITRE (9 %)  AMP 10ML
  20. OXYCODON [Concomitant]
     Active Substance: OXYCODONE
     Dosage: 10 MILLIGRAM, AS NECESSARY
  21. FENTANYL. [Concomitant]
     Active Substance: FENTANYL
     Dosage: PLASTER 25UG/HR (GENERIC+DUROGESIC), 1X2D1PL
  22. MAGNESIUM HYDROXIDE. [Concomitant]
     Active Substance: MAGNESIUM HYDROXIDE
     Dosage: 724 MILLIGRAM, 1?3D1?2T
  23. MIDAZOLAM. [Concomitant]
     Active Substance: MIDAZOLAM
     Dosage: 5 MILLIGRAM PER MILLILITRE AMP 1ML
  24. SODIUM PHOSPHATE [Concomitant]
     Active Substance: SODIUM PHOSPHATE
     Dosage: 1D1EN

REACTIONS (1)
  - Neoplasm progression [Fatal]
